FAERS Safety Report 4810370-8 (Version None)
Quarter: 2005Q4

REPORT INFORMATION
  Report Type: 
  Country: None (occurrence: None)
  Receive Date: 20051024
  Receipt Date: 20051013
  Transmission Date: 20060501
  Serious: Yes (Hospitalization)
  Sender: FDA-Public Use
  Company Number: 2005131054

PATIENT
  Sex: Female

DRUGS (5)
  1. LYRICA [Suspect]
     Indication: POST HERPETIC NEURALGIA
     Dosage: 150 MG, ORAL
     Route: 048
     Dates: start: 20050201, end: 20050914
  2. GABAPENTIN [Suspect]
     Indication: ILL-DEFINED DISORDER
     Dosage: ORAL
     Route: 048
     Dates: start: 20050101, end: 20050101
  3. OXYBUTYNIN [Concomitant]
  4. CLEBOPRIDE [Concomitant]
  5. TRAMADOL [Concomitant]

REACTIONS (14)
  - ANXIETY [None]
  - ARTHRALGIA [None]
  - BLOOD CHOLESTEROL INCREASED [None]
  - BLOOD PRESSURE SYSTOLIC INCREASED [None]
  - BLOOD UREA INCREASED [None]
  - DISCOMFORT [None]
  - DRUG INTOLERANCE [None]
  - FATIGUE [None]
  - FEELING ABNORMAL [None]
  - GAIT DISTURBANCE [None]
  - KNEE ARTHROPLASTY [None]
  - OEDEMA PERIPHERAL [None]
  - SOMNOLENCE [None]
  - WEIGHT INCREASED [None]
